FAERS Safety Report 21146504 (Version 1)
Quarter: 2022Q3

REPORT INFORMATION
  Report Type: Spontaneous
  Country: DE (occurrence: DE)
  Receive Date: 20220729
  Receipt Date: 20220729
  Transmission Date: 20221027
  Serious: No
  Sender: FDA-Public Use
  Company Number: DE-ALKEM LABORATORIES LIMITED-DE-ALKEM-2021-05619

PATIENT
  Sex: Female

DRUGS (1)
  1. CEFUROXIME AXETIL [Suspect]
     Active Substance: CEFUROXIME AXETIL
     Indication: Urinary tract infection
     Dosage: UNK
     Route: 065

REACTIONS (4)
  - Spinal pain [Unknown]
  - Flatulence [Unknown]
  - Arthralgia [Unknown]
  - Pain in extremity [Unknown]
